FAERS Safety Report 15533303 (Version 1)
Quarter: 2018Q4

REPORT INFORMATION
  Report Type: Spontaneous
  Country: CA (occurrence: CA)
  Receive Date: 20181019
  Receipt Date: 20181019
  Transmission Date: 20190205
  Serious: Yes (Hospitalization, Other)
  Sender: FDA-Public Use
  Company Number: CA-GLAXOSMITHKLINE-CA2018GSK189273

PATIENT
  Sex: Male

DRUGS (6)
  1. DOLUTEGRAVIR [Interacting]
     Active Substance: DOLUTEGRAVIR
     Indication: HIV INFECTION
     Dosage: 100 MG, QID
     Route: 048
  2. TIPRANAVIR [Interacting]
     Active Substance: TIPRANAVIR
     Indication: HIV INFECTION
     Dosage: UNK UNK, BID
     Route: 048
  3. RITONAVIR. [Interacting]
     Active Substance: RITONAVIR
     Indication: HIV INFECTION
     Dosage: UNK UNK, BID
     Route: 048
  4. LAMIVUDINE. [Suspect]
     Active Substance: LAMIVUDINE
     Indication: HIV INFECTION
     Dosage: 300 MG, 1D
     Route: 048
  5. ETRAVIRINE [Interacting]
     Active Substance: ETRAVIRINE
     Indication: HIV INFECTION
     Dosage: 300 MG, QID
     Route: 048
  6. FLUCONAZOLE. [Interacting]
     Active Substance: FLUCONAZOLE
     Indication: HIV INFECTION
     Dosage: 200 MG, 1D
     Route: 048

REACTIONS (11)
  - Gastrointestinal disorder [Unknown]
  - Viraemia [Unknown]
  - Drug resistance [Unknown]
  - Malabsorption [Unknown]
  - Drug interaction [Unknown]
  - Off label use [Unknown]
  - Viral load increased [Unknown]
  - CD4 lymphocytes decreased [Unknown]
  - Cytomegalovirus chorioretinitis [Unknown]
  - Mycobacterial infection [Unknown]
  - Opportunistic infection [Unknown]
